FAERS Safety Report 20407457 (Version 1)
Quarter: 2022Q1

REPORT INFORMATION
  Report Type: Spontaneous
  Country: GB (occurrence: GB)
  Receive Date: 20220131
  Receipt Date: 20220131
  Transmission Date: 20220423
  Serious: Yes (Life-Threatening, Hospitalization)
  Sender: FDA-Public Use
  Company Number: None

PATIENT
  Age: 58 Year
  Sex: Female

DRUGS (3)
  1. ESTRADIOL [Suspect]
     Active Substance: ESTRADIOL
     Indication: Hormone replacement therapy
     Dosage: 2 MG
     Route: 048
  2. MESTRANOL\NORETHINDRONE [Suspect]
     Active Substance: MESTRANOL\NORETHINDRONE
     Indication: Hormone replacement therapy
     Dosage: 1 MG
     Route: 048
  3. LANSOPRAZOLE [Concomitant]
     Active Substance: LANSOPRAZOLE
     Dosage: UNK

REACTIONS (1)
  - Lacunar stroke [Recovering/Resolving]

NARRATIVE: CASE EVENT DATE: 20220114
